FAERS Safety Report 25728693 (Version 3)
Quarter: 2025Q4

REPORT INFORMATION
  Report Type: Report from Study
  Country: TH (occurrence: TH)
  Receive Date: 20250826
  Receipt Date: 20251218
  Transmission Date: 20260117
  Serious: Yes (Hospitalization)
  Sender: EISAI
  Company Number: TH-Eisai-EC-2025-195500

PATIENT
  Age: 63 Year
  Sex: Male

DRUGS (6)
  1. LENVIMA [Suspect]
     Active Substance: LENVATINIB
     Indication: Hepatocellular carcinoma
     Route: 048
     Dates: start: 20250730, end: 20250809
  2. LENVIMA [Suspect]
     Active Substance: LENVATINIB
     Dosage: 5 DAYS ON, 2 DAYS OFF
     Route: 048
     Dates: start: 20250820, end: 20250904
  3. LENVIMA [Suspect]
     Active Substance: LENVATINIB
     Dosage: 1 CAPSULE EVERY OTHER DAY
     Route: 048
     Dates: start: 20250918, end: 20251001
  4. LENVIMA [Suspect]
     Active Substance: LENVATINIB
     Dosage: 1 CAPSULE FOR 4 CONSECUTIVE DAYS, THEN WITHHOLDING 3 DAYS
     Route: 048
  5. ACETAMINOPHEN [Concomitant]
     Active Substance: ACETAMINOPHEN
     Indication: Back pain
     Dosage: DOSE AND FREQUENCY UNKNOWN
  6. TRAMADOL [Concomitant]
     Active Substance: TRAMADOL
     Indication: Back pain
     Dosage: DOSE AND FREQUENCY UNKNOWN
     Dates: start: 2025, end: 20251001

REACTIONS (2)
  - Liver function test increased [Not Recovered/Not Resolved]
  - Hyperhidrosis [Recovering/Resolving]

NARRATIVE: CASE EVENT DATE: 20250808
